FAERS Safety Report 12192016 (Version 1)
Quarter: 2016Q1

REPORT INFORMATION
  Report Type: Spontaneous
  Country: FR (occurrence: FR)
  Receive Date: 20160318
  Receipt Date: 20160318
  Transmission Date: 20160526
  Serious: Yes (Hospitalization)
  Sender: FDA-Public Use
  Company Number: FR-SA-2016SA052495

PATIENT
  Age: 85 Year
  Sex: Female

DRUGS (8)
  1. BISOCE [Concomitant]
     Active Substance: BISOPROLOL
     Dates: start: 20160110, end: 20160111
  2. CHONDROSULF [Concomitant]
     Active Substance: CHONDROITIN SULFATE (CHICKEN)
  3. ELIQUIS [Concomitant]
     Active Substance: APIXABAN
     Indication: ATRIAL FIBRILLATION
     Dates: start: 20160110
  4. LASILIX [Suspect]
     Active Substance: FUROSEMIDE
     Indication: HYPERTROPHIC CARDIOMYOPATHY
     Route: 048
     Dates: end: 20160110
  5. KETOPROFENE [Suspect]
     Active Substance: KETOPROFEN
     Indication: PAIN
     Route: 048
     Dates: start: 20160108, end: 20160110
  6. KALEORID [Concomitant]
     Active Substance: POTASSIUM CHLORIDE
  7. ALFUZOSIN [Concomitant]
     Active Substance: ALFUZOSIN
  8. PARACETAMOL [Concomitant]
     Active Substance: ACETAMINOPHEN

REACTIONS (1)
  - Acute kidney injury [Recovered/Resolved]

NARRATIVE: CASE EVENT DATE: 20160110
